FAERS Safety Report 5783743-7 (Version None)
Quarter: 2008Q2

REPORT INFORMATION
  Report Type: 
  Country: None (occurrence: None)
  Receive Date: 20080605
  Receipt Date: 20080324
  Transmission Date: 20081010
  Serious: No
  Sender: FDA-Public Use
  Company Number: A0717071A

PATIENT
  Sex: Female

DRUGS (1)
  1. ALLI [Suspect]

REACTIONS (7)
  - BRONCHITIS [None]
  - EAR INFECTION [None]
  - HORMONE LEVEL ABNORMAL [None]
  - HYPERSENSITIVITY [None]
  - PREGNANCY [None]
  - SINUSITIS [None]
  - VOMITING [None]
